FAERS Safety Report 6120490-6 (Version None)
Quarter: 2009Q1

REPORT INFORMATION
  Report Type: 
  Country: None (occurrence: None)
  Receive Date: 20090317
  Receipt Date: 20090313
  Transmission Date: 20090719
  Serious: Yes (Hospitalization, Other)
  Sender: FDA-Public Use
  Company Number: FR-BRISTOL-MYERS SQUIBB COMPANY-14406714

PATIENT
  Age: 71 Year
  Sex: Male

DRUGS (2)
  1. SPRYCEL [Suspect]
     Indication: CHRONIC MYELOID LEUKAEMIA
     Dosage: IN MAY-2008 DOSE WAS REDUCED TO 80MG/D
     Dates: start: 20080330, end: 20080704
  2. HYDREA [Suspect]
     Dosage: REDUCED TO 2/2 DAY

REACTIONS (17)
  - ACUTE FEBRILE NEUTROPHILIC DERMATOSIS [None]
  - ANAEMIA [None]
  - ARRHYTHMIA [None]
  - BONE MARROW FAILURE [None]
  - CARDIAC FAILURE [None]
  - DILATATION VENTRICULAR [None]
  - DRUG INEFFECTIVE [None]
  - DYSPNOEA [None]
  - MYELOCYTOSIS [None]
  - NO THERAPEUTIC RESPONSE [None]
  - PANNICULITIS [None]
  - PLEURAL EFFUSION [None]
  - ROSACEA [None]
  - SUPRAVENTRICULAR EXTRASYSTOLES [None]
  - THROMBOCYTOPENIA [None]
  - TOOTH ABSCESS [None]
  - WEIGHT INCREASED [None]
